FAERS Safety Report 9478869 (Version 2)
Quarter: 2013Q3

REPORT INFORMATION
  Report Type: Spontaneous
  Country: US (occurrence: None)
  Receive Date: 20130823
  Receipt Date: 20130829
  Transmission Date: 20140515
  Serious: Yes (Hospitalization)
  Sender: FDA-Public Use
  Company Number: IND1-US-2013-0046

PATIENT
  Age: 58 Year
  Sex: Female
  Weight: 74.39 kg

DRUGS (8)
  1. INDOCIN [Suspect]
     Indication: RHEUMATOID ARTHRITIS
     Dates: start: 2003
  2. AZATHIOPRINE (AZATHIOPRINE) (UNKNOWN) (AZATHIOPRINE) [Concomitant]
  3. HYDROXYCHLOROQUINE (HYDROXYCHLOROQUINE) (UNKNOWN) (HYDROXYCHLOROQUINE) [Concomitant]
  4. PREDNISONE (PREDNISONE) (UNKNOWN ) (PREDNISONE) [Concomitant]
  5. TRAMADOL (TRAMAODL) (UNKNOWN) TRAMADOL) [Concomitant]
  6. LEVOTHYROXIN (LEVOTHYROXINE SODIUM) (UNKNOWN)LEVOTYHROXINESODIUM) [Concomitant]
  7. PROCARDIA (NIFEDIPINE) (UNKNOWN) (NIFEDIPINE) [Concomitant]
  8. LEFLUNOMIDE (LEFLUNOMIDE) (UNKNOWN) (LEFUNOMIDE) [Concomitant]

REACTIONS (7)
  - Irritable bowel syndrome [None]
  - Gastritis [None]
  - Neutrophil count increased [None]
  - Lymphocyte count decreased [None]
  - Back pain [None]
  - Hypertension [None]
  - Arthralgia [None]
